FAERS Safety Report 23050375 (Version 2)
Quarter: 2023Q4

REPORT INFORMATION
  Report Type: Spontaneous
  Country: US (occurrence: US)
  Receive Date: 20231010
  Receipt Date: 20231121
  Transmission Date: 20240109
  Serious: Yes (Death)
  Sender: FDA-Public Use
  Company Number: US-PFIZER INC-PV202300141050

PATIENT
  Age: 14 Year
  Sex: Female
  Weight: 83.9 kg

DRUGS (1)
  1. IBRANCE [Suspect]
     Active Substance: PALBOCICLIB
     Indication: Ewing^s sarcoma
     Dosage: 2 DF, 1X/DAY
     Dates: start: 202308

REACTIONS (3)
  - Neoplasm progression [Fatal]
  - Off label use [Unknown]
  - Off label use [Unknown]
